FAERS Safety Report 15456283 (Version 4)
Quarter: 2019Q1

REPORT INFORMATION
  Report Type: Spontaneous
  Country: ES (occurrence: ES)
  Receive Date: 20181002
  Receipt Date: 20190206
  Transmission Date: 20190417
  Serious: Yes (Hospitalization, Other)
  Sender: FDA-Public Use
  Company Number: ES-ALEXION PHARMACEUTICALS INC.-A201812755

PATIENT
  Age: 1 Year
  Sex: Female
  Weight: 15 kg

DRUGS (2)
  1. SOLIRIS [Suspect]
     Active Substance: ECULIZUMAB
     Indication: ATYPICAL HAEMOLYTIC URAEMIC SYNDROME
     Dosage: 600 MG, UNK
     Route: 042
     Dates: start: 20180816
  2. SOLIRIS [Suspect]
     Active Substance: ECULIZUMAB
     Dosage: 300 MG, UNK
     Route: 065

REACTIONS (7)
  - Hordeolum [Unknown]
  - Hospitalisation [Recovered/Resolved]
  - Petit mal epilepsy [Unknown]
  - Blindness unilateral [Recovered/Resolved]
  - Retinal drusen [Unknown]
  - Vitreous haemorrhage [Unknown]
  - Crying [Unknown]

NARRATIVE: CASE EVENT DATE: 20180814
